FAERS Safety Report 21327337 (Version 2)
Quarter: 2023Q1

REPORT INFORMATION
  Report Type: Spontaneous
  Country: US (occurrence: US)
  Receive Date: 20220913
  Receipt Date: 20230111
  Transmission Date: 20230418
  Serious: No
  Sender: FDA-Public Use
  Company Number: US-SA-SAC20220907001352

PATIENT
  Age: 16 Year
  Sex: Male
  Weight: 66.7 kg

DRUGS (9)
  1. DUPIXENT [Suspect]
     Active Substance: DUPILUMAB
     Indication: Illness
     Dosage: 300 MG, QOW
     Route: 058
     Dates: start: 20220901
  2. DUPIXENT [Suspect]
     Active Substance: DUPILUMAB
     Indication: Dermatitis atopic
  3. TRIAMCINOLONE ACETONIDE [Concomitant]
     Active Substance: TRIAMCINOLONE ACETONIDE
  4. MOMETASONE FUROATE [Concomitant]
     Active Substance: MOMETASONE FUROATE
  5. SOAP [Concomitant]
     Active Substance: SOAP
  6. VITAMINS NOS [Concomitant]
     Active Substance: VITAMINS
  7. LUBRIDERM [PARAFFIN] [Concomitant]
  8. CERAVE HEALING [Concomitant]
     Active Substance: PETROLATUM
  9. CLINDAMYCIN [Concomitant]
     Active Substance: CLINDAMYCIN
     Dosage: USES AFTER BATHING

REACTIONS (4)
  - Dry skin [Unknown]
  - Poor quality sleep [Unknown]
  - Pruritus [Unknown]
  - Dermatitis atopic [Unknown]
